FAERS Safety Report 17988084 (Version 1)
Quarter: 2020Q3

REPORT INFORMATION
  Report Type: Spontaneous
  Country: US (occurrence: US)
  Receive Date: 20200706
  Receipt Date: 20200706
  Transmission Date: 20201103
  Serious: Yes (Hospitalization)
  Sender: FDA-Public Use
  Company Number: None

PATIENT
  Sex: Male

DRUGS (2)
  1. CINACALET HCL 30MG CIPLA USA [Suspect]
     Active Substance: CINACALCET HYDROCHLORIDE
     Route: 048
     Dates: start: 201908
  2. SENSIPAR [Concomitant]
     Active Substance: CINACALCET HYDROCHLORIDE

REACTIONS (7)
  - Road traffic accident [None]
  - Coronavirus infection [None]
  - Fatigue [None]
  - Blood potassium increased [None]
  - Blood calcium increased [None]
  - Exercise tolerance decreased [None]
  - Venous occlusion [None]
